FAERS Safety Report 4786838-X (Version None)
Quarter: 2005Q4

REPORT INFORMATION
  Report Type: 
  Country: None (occurrence: None)
  Receive Date: 20051003
  Receipt Date: 20051003
  Transmission Date: 20060501
  Serious: Yes (Other)
  Sender: FDA-Public Use
  Company Number: None

PATIENT
  Age: 83 Year
  Sex: Female
  Weight: 53.0709 kg

DRUGS (2)
  1. ZOCOR [Suspect]
     Indication: DIABETES MELLITUS NON-INSULIN-DEPENDENT
     Dosage: 80 MG Q DAY
  2. ZOCOR [Suspect]
     Indication: HYPERLIPIDAEMIA
     Dosage: 80 MG Q DAY

REACTIONS (1)
  - RASH MACULO-PAPULAR [None]
